FAERS Safety Report 15029419 (Version 2)
Quarter: 2018Q3

REPORT INFORMATION
  Report Type: Report from Study
  Country: US (occurrence: US)
  Receive Date: 20180619
  Receipt Date: 20180927
  Transmission Date: 20181010
  Serious: Yes (Other)
  Sender: FDA-Public Use
  Company Number: US-UCBSA-2018001666

PATIENT
  Age: 55 Year
  Sex: Female

DRUGS (4)
  1. BRIVARACETAM [Suspect]
     Active Substance: BRIVARACETAM
     Dosage: 200 MG, 2X/DAY (BID)
     Dates: start: 2018, end: 2018
  2. BRIVARACETAM [Suspect]
     Active Substance: BRIVARACETAM
     Indication: SEIZURE
     Dosage: 100 MG, 2X/DAY (BID)
     Dates: start: 20171103
  3. VIMPAT [Suspect]
     Active Substance: LACOSAMIDE
     Dosage: WAS ONLY ABLE TO TAKE 1 TABLET OF 100 MG RATHER THAN 2 TABLETS
     Dates: start: 20180607, end: 2018
  4. VIMPAT [Suspect]
     Active Substance: LACOSAMIDE
     Indication: PARTIAL SEIZURES
     Dosage: 200 MG, 2X/DAY (BID)
     Dates: start: 20171106, end: 20180606

REACTIONS (5)
  - Surgery [Not Recovered/Not Resolved]
  - Overdose [Unknown]
  - Drug dose omission [Unknown]
  - Intentional product misuse [Unknown]
  - Off label use [Unknown]

NARRATIVE: CASE EVENT DATE: 2018
